FAERS Safety Report 25179998 (Version 1)
Quarter: 2025Q2

REPORT INFORMATION
  Report Type: Spontaneous
  Country: US (occurrence: None)
  Receive Date: 20250409
  Receipt Date: 20250409
  Transmission Date: 20250717
  Serious: Yes (Other)
  Sender: FDA-CTU
  Company Number: None

PATIENT

DRUGS (1)
  1. YESCARTA [Suspect]
     Active Substance: AXICABTAGENE CILOLEUCEL

REACTIONS (3)
  - Infusion related reaction [None]
  - Squamous cell carcinoma [None]
  - Metastatic neoplasm [None]

NARRATIVE: CASE EVENT DATE: 20250407
